FAERS Safety Report 24588219 (Version 1)
Quarter: 2024Q4

REPORT INFORMATION
  Report Type: Spontaneous
  Country: US (occurrence: None)
  Receive Date: 20241106
  Receipt Date: 20241106
  Transmission Date: 20250115
  Serious: No
  Sender: Public
  Company Number: None

PATIENT
  Age: 79 Year
  Sex: Male

DRUGS (1)
  1. LENALIDOMIDE [Suspect]
     Active Substance: LENALIDOMIDE
     Indication: Plasma cell myeloma
     Dosage: 15MG QD ORL?
     Route: 048
     Dates: start: 20221107

REACTIONS (5)
  - Suprapubic pain [None]
  - Defaecation urgency [None]
  - Hypotension [None]
  - Dyspnoea [None]
  - Dizziness [None]

NARRATIVE: CASE EVENT DATE: 20241029
